FAERS Safety Report 8583577 (Version 2)
Quarter: 2012Q4

REPORT INFORMATION
  Report Type: 
  Country: US (occurrence: US)
  Receive Date: 20120529
  Receipt Date: 20121127
  Transmission Date: 20130627
  Serious: Yes (Hospitalization)
  Sender: FDA-Public Use
  Company Number: US-AMGEN-USASP2012032774

PATIENT
  Age: 56 Year
  Sex: Female

DRUGS (1)
  1. ENBREL [Suspect]
     Indication: RHEUMATOID ARTHRITIS
     Dosage: 50 mg, qwk
     Dates: start: 20110601, end: 201210

REACTIONS (9)
  - Breast cancer [Recovered/Resolved]
  - Wound closure [Recovered/Resolved]
  - Postoperative wound infection [Not Recovered/Not Resolved]
  - Impaired healing [Not Recovered/Not Resolved]
  - Erythema [Recovered/Resolved]
  - Breast oedema [Recovered/Resolved]
  - Breast pain [Recovered/Resolved]
  - Breast infection [Recovered/Resolved]
  - Arthralgia [Not Recovered/Not Resolved]
